FAERS Safety Report 5788524-6 (Version None)
Quarter: 2008Q2

REPORT INFORMATION
  Report Type: 
  Country: None (occurrence: None)
  Receive Date: 20080625
  Receipt Date: 20080625
  Transmission Date: 20081010
  Serious: No
  Sender: FDA-Public Use
  Company Number: None

PATIENT
  Age: 46 Year
  Sex: Female
  Weight: 82.1011 kg

DRUGS (3)
  1. OXCARBAZEPINE [Suspect]
     Indication: TRIGEMINAL NEURALGIA
     Dosage: 450 MG BID PO
     Route: 048
     Dates: start: 20080201
  2. ALEVE [Concomitant]
  3. MULTI-VITAMINS [Concomitant]

REACTIONS (2)
  - PAIN [None]
  - THERAPEUTIC RESPONSE UNEXPECTED WITH DRUG SUBSTITUTION [None]
